FAERS Safety Report 4480081-X (Version None)
Quarter: 2004Q3

REPORT INFORMATION
  Report Type: 
  Country: None (occurrence: None)
  Receive Date: 20040923
  Receipt Date: 20040607
  Transmission Date: 20050211
  Serious: No
  Sender: FDA-Public Use
  Company Number: USA040669534

PATIENT
  Age: 54 Year
  Sex: Female

DRUGS (1)
  1. FORTEO [Suspect]
     Dates: start: 20040507, end: 20040601

REACTIONS (4)
  - DRY SKIN [None]
  - EYE PRURITUS [None]
  - EYELID OEDEMA [None]
  - MUSCLE SPASMS [None]
